FAERS Safety Report 8843751 (Version 1)
Quarter: 2012Q4

REPORT INFORMATION
  Report Type: 
  Country: BR (occurrence: BR)
  Receive Date: 20121017
  Receipt Date: 20121017
  Transmission Date: 20130627
  Serious: Yes (Hospitalization)
  Sender: FDA-Public Use
  Company Number: BR-AMGEN-BRASP2012065315

PATIENT
  Age: 28 Year
  Sex: Male
  Weight: 107 kg

DRUGS (2)
  1. ENBREL [Suspect]
     Indication: ANKYLOSING SPONDYLITIS
     Dosage: 50 mg, 1x/week
     Route: 058
     Dates: start: 20111111, end: 20120611
  2. METHOTREXATE SODIUM [Suspect]
     Dosage: UNK
     Dates: start: 201108

REACTIONS (1)
  - Testis cancer [Unknown]
